APPROVED DRUG PRODUCT: PROGESTERONE
Active Ingredient: PROGESTERONE
Strength: 100MG
Dosage Form/Route: CAPSULE;ORAL
Application: A202121 | Product #001
Applicant: TEVA PHARMACEUTICALS USA
Approved: Feb 29, 2012 | RLD: No | RS: No | Type: DISCN